FAERS Safety Report 23314244 (Version 1)
Quarter: 2023Q4

REPORT INFORMATION
  Report Type: Spontaneous
  Country: US (occurrence: US)
  Receive Date: 20231219
  Receipt Date: 20231219
  Transmission Date: 20240110
  Serious: Yes (Hospitalization)
  Sender: FDA-Public Use
  Company Number: US-MEDEXUS PHARMA, INC.-2023MED00522

PATIENT
  Age: 73 Year
  Sex: Male

DRUGS (2)
  1. RASUVO [Suspect]
     Active Substance: METHOTREXATE SODIUM
     Indication: Rheumatoid arthritis
     Dosage: 25 MG INJECTED IN THE STOMACH, 1X/WEEK ON MONDAYS
     Route: 065
     Dates: start: 2020
  2. UNSPECIFIED INGREDIENT [Concomitant]
     Active Substance: UNSPECIFIED INGREDIENT

REACTIONS (5)
  - Knee arthroplasty [Not Recovered/Not Resolved]
  - Exposure via skin contact [Recovered/Resolved]
  - Device mechanical issue [Recovered/Resolved]
  - Device defective [Recovered/Resolved]
  - Device use error [Recovered/Resolved]

NARRATIVE: CASE EVENT DATE: 20231201
